FAERS Safety Report 6122528-9 (Version None)
Quarter: 2009Q1

REPORT INFORMATION
  Report Type: 
  Country: None (occurrence: None)
  Receive Date: 20090318
  Receipt Date: 20081125
  Transmission Date: 20090719
  Serious: No
  Sender: FDA-Public Use
  Company Number: US-ASTRAZENECA-2008UW26468

PATIENT
  Age: 80 Year
  Sex: Female

DRUGS (1)
  1. SYMBICORT [Suspect]
     Dosage: 80 MCG
     Route: 055
     Dates: start: 20081121

REACTIONS (3)
  - PANIC DISORDER [None]
  - RASH [None]
  - THROAT TIGHTNESS [None]
